FAERS Safety Report 6107504-4 (Version None)
Quarter: 2009Q1

REPORT INFORMATION
  Report Type: 
  Country: None (occurrence: None)
  Receive Date: 20090302
  Receipt Date: 20080731
  Transmission Date: 20090719
  Serious: Yes (Hospitalization)
  Sender: FDA-Public Use
  Company Number: WAES 0808USA01295

PATIENT
  Age: 69 Year
  Sex: Female
  Weight: 64.4108 kg

DRUGS (13)
  1. PRINIVIL [Suspect]
     Dosage: 10 MG/DAILY/PO
     Route: 048
  2. COZAAR [Suspect]
     Dosage: 50 MG/DAILY/PO
     Route: 048
  3. AMARYL [Concomitant]
  4. ASPIRIN [Concomitant]
  5. EVISTA [Concomitant]
  6. FLONASE [Concomitant]
  7. PRAVACHOL [Concomitant]
  8. TOPROL-XL [Concomitant]
  9. TRICOR [Concomitant]
  10. VIOXX [Concomitant]
  11. ZYRTEC [Concomitant]
  12. HYDROCODONE BIITARTRATE [Concomitant]
  13. TEMAZEPAM [Concomitant]

REACTIONS (3)
  - CHEST PAIN [None]
  - COUGH [None]
  - PAIN IN EXTREMITY [None]
